FAERS Safety Report 4910747-6 (Version None)
Quarter: 2006Q1

REPORT INFORMATION
  Report Type: 
  Country: None (occurrence: None)
  Receive Date: 20060214
  Receipt Date: 20060203
  Transmission Date: 20060701
  Serious: Yes (Hospitalization)
  Sender: FDA-Public Use
  Company Number: JP-BRISTOL-MYERS SQUIBB COMPANY-13276910

PATIENT
  Age: 73 Year
  Sex: Female
  Weight: 59 kg

DRUGS (5)
  1. UFT [Suspect]
     Indication: COLON CANCER
     Route: 048
     Dates: start: 20041122, end: 20050201
  2. LEUCOVORIN [Suspect]
     Indication: COLON CANCER
     Route: 048
     Dates: start: 20041122, end: 20050201
  3. NICORANDIL [Concomitant]
     Route: 048
     Dates: start: 20041118, end: 20050209
  4. NIZATIDINE [Concomitant]
     Route: 048
     Dates: start: 20041118, end: 20050209
  5. DILTIAZEM HCL [Concomitant]
     Route: 048
     Dates: start: 20041118, end: 20050209

REACTIONS (2)
  - ANOREXIA [None]
  - BLOOD UREA DECREASED [None]
